FAERS Safety Report 5277166-7 (Version None)
Quarter: 2007Q1

REPORT INFORMATION
  Report Type: 
  Country: None (occurrence: None)
  Receive Date: 20061213
  Receipt Date: 20050118
  Transmission Date: 20070707
  Serious: Yes (Hospitalization)
  Sender: FDA-Public Use
  Company Number: 2004UW21687

PATIENT
  Age: 91 Year
  Sex: Female
  Weight: 74.842 kg

DRUGS (5)
  1. SEROQUEL [Suspect]
     Dates: start: 20041001
  2. ZOLOFT [Concomitant]
  3. LOTREL [Concomitant]
  4. ARICEPT [Concomitant]
  5. CELEBREX [Concomitant]

REACTIONS (1)
  - MANIA [None]
